FAERS Safety Report 5092506-X (Version None)
Quarter: 2006Q3

REPORT INFORMATION
  Report Type: 
  Country: None (occurrence: None)
  Receive Date: 20060828
  Receipt Date: 20060815
  Transmission Date: 20061208
  Serious: Yes (Other)
  Sender: FDA-Public Use
  Company Number: 2006100493

PATIENT
  Age: 65 Year
  Sex: Female

DRUGS (3)
  1. CELEBREX [Suspect]
     Indication: BACK PAIN
     Dosage: 200 MG (200 MG, 1 IN 1 D);
  2. ZOLOFT [Suspect]
     Indication: HOT FLUSH
     Dosage: 50 MG (50 MG, 1 IN 1 D);
  3. ARICEPT [Suspect]
     Indication: COGNITIVE DISORDER
     Dosage: 5 MG (5 MG, 1 IN 1 D);
     Dates: start: 20060401

REACTIONS (9)
  - ABNORMAL DREAMS [None]
  - BACK PAIN [None]
  - BLOOD CHOLESTEROL INCREASED [None]
  - COGNITIVE DISORDER [None]
  - HALLUCINATION, VISUAL [None]
  - LIVER FUNCTION TEST ABNORMAL [None]
  - MUSCLE SPASMS [None]
  - SLEEP TALKING [None]
  - SYNCOPE [None]
